FAERS Safety Report 18731729 (Version 1)
Quarter: 2021Q1

REPORT INFORMATION
  Report Type: Spontaneous
  Country: CA (occurrence: CA)
  Receive Date: 20210112
  Receipt Date: 20210112
  Transmission Date: 20210419
  Serious: Yes (Life-Threatening, Hospitalization)
  Sender: FDA-Public Use
  Company Number: CA-TEVA-2020-CA-1864638

PATIENT
  Age: 1 Year
  Sex: Male
  Weight: 11 kg

DRUGS (13)
  1. TRIMETHOPRIM?SULFAMETHOXAZOLE [Concomitant]
     Active Substance: SULFAMETHOXAZOLE\TRIMETHOPRIM
  2. MESNA. [Concomitant]
     Active Substance: MESNA
  3. METOCLOPRAMIDE. [Concomitant]
     Active Substance: METOCLOPRAMIDE
  4. ACETAMINOPHEN. [Concomitant]
     Active Substance: ACETAMINOPHEN
  5. HEPARIN CALCIUM [Concomitant]
     Active Substance: HEPARIN CALCIUM
  6. ONDANSETRON [Concomitant]
     Active Substance: ONDANSETRON
  7. ETOPOSIDE. [Suspect]
     Active Substance: ETOPOSIDE
     Indication: NEUROBLASTOMA
     Route: 042
  8. CYCLOPHOSPHAMIDE. [Suspect]
     Active Substance: CYCLOPHOSPHAMIDE
     Indication: NEUROBLASTOMA
     Route: 042
  9. FUROSEMIDE. [Concomitant]
     Active Substance: FUROSEMIDE
  10. DEXAMETHASONE. [Concomitant]
     Active Substance: DEXAMETHASONE
     Route: 065
  11. DIMENHYDRINATE. [Concomitant]
     Active Substance: DIMENHYDRINATE
  12. FILGRASTIM [Concomitant]
     Active Substance: FILGRASTIM
  13. ZINC. [Concomitant]
     Active Substance: ZINC

REACTIONS (1)
  - Febrile neutropenia [Recovered/Resolved]
